FAERS Safety Report 9380652 (Version 2)
Quarter: 2013Q3

REPORT INFORMATION
  Report Type: Spontaneous
  Country: US (occurrence: US)
  Receive Date: 20130702
  Receipt Date: 20130715
  Transmission Date: 20140515
  Serious: Yes (Other)
  Sender: FDA-Public Use
  Company Number: CHPA2013US010520

PATIENT
  Age: 64 Year
  Sex: Female

DRUGS (2)
  1. PERDIEM FIBER [Suspect]
     Indication: CONSTIPATION
     Dosage: 1 SPOONFUL, QPM
     Route: 048
  2. PERDIEM OVERNIGHT RELIEF PILLS [Suspect]
     Indication: CONSTIPATION
     Dosage: 1 DF, QD
     Route: 048

REACTIONS (1)
  - Atrial fibrillation [Not Recovered/Not Resolved]
